FAERS Safety Report 8570342-7 (Version None)
Quarter: 2012Q3

REPORT INFORMATION
  Report Type: 
  Country: None (occurrence: None)
  Receive Date: 20120803
  Receipt Date: 20120725
  Transmission Date: 20120928
  Serious: Yes (Hospitalization, Other)
  Sender: FDA-Public Use
  Company Number: CH-ASTRAZENECA-2012SE52481

PATIENT
  Age: 75 Year
  Sex: Female
  Weight: 90 kg

DRUGS (4)
  1. HYDROCHLORTHIAZIDE [Suspect]
     Indication: ESSENTIAL HYPERTENSION
     Route: 048
  2. METOPROLOL TARTRATE [Interacting]
     Indication: ESSENTIAL HYPERTENSION
     Route: 048
  3. TIMOLOL MALEATE [Interacting]
     Indication: GLAUCOMA
     Route: 047
     Dates: start: 20120301
  4. LISINOPRIL [Concomitant]
     Route: 048

REACTIONS (9)
  - MALAISE [None]
  - RENAL FAILURE [None]
  - FEELING HOT [None]
  - TYPE 2 DIABETES MELLITUS [None]
  - VENOUS INSUFFICIENCY [None]
  - DRUG ADMINISTRATION ERROR [None]
  - OEDEMA [None]
  - ATRIOVENTRICULAR BLOCK [None]
  - HEADACHE [None]
